FAERS Safety Report 5034914-9 (Version None)
Quarter: 2006Q2

REPORT INFORMATION
  Report Type: 
  Country: None (occurrence: None)
  Receive Date: 20060622
  Receipt Date: 20060619
  Transmission Date: 20061013
  Serious: Yes (Hospitalization)
  Sender: FDA-Public Use
  Company Number: E2020-00154-SPO-JP

PATIENT
  Age: 71 Year
  Sex: Male

DRUGS (3)
  1. ARICEPT [Suspect]
     Indication: DEMENTIA ALZHEIMER'S TYPE
     Dosage: 5 MG, 1 IN 1 D, ORAL
     Route: 048
     Dates: start: 20041201, end: 20060519
  2. GRAMALIL (TIAPRIDE HYDROCHLORIDE) [Concomitant]
  3. VALPROATE SODIUM [Concomitant]

REACTIONS (15)
  - BEDRIDDEN [None]
  - CEREBRAL ATROPHY [None]
  - CEREBROVASCULAR DISORDER [None]
  - COMA [None]
  - COMMUNICATION DISORDER [None]
  - DEPRESSED LEVEL OF CONSCIOUSNESS [None]
  - DRUG INEFFECTIVE [None]
  - FALL [None]
  - HEAD TITUBATION [None]
  - HYPERAMMONAEMIA [None]
  - HYPOAESTHESIA [None]
  - ILEUS [None]
  - ILL-DEFINED DISORDER [None]
  - PYREXIA [None]
  - SOMNOLENCE [None]
